FAERS Safety Report 4461575-X (Version None)
Quarter: 2004Q3

REPORT INFORMATION
  Report Type: 
  Country: None (occurrence: None)
  Receive Date: 20040929
  Receipt Date: 20040922
  Transmission Date: 20050211
  Serious: Yes (Death)
  Sender: FDA-Public Use
  Company Number: US-JNJFOC-20040907941

PATIENT
  Sex: Female

DRUGS (1)
  1. REMICADE [Suspect]
     Indication: SARCOIDOSIS
     Route: 042

REACTIONS (4)
  - INTRA-ABDOMINAL HAEMORRHAGE [None]
  - LYMPHOPROLIFERATIVE DISORDER [None]
  - MULTIPLE MYELOMA [None]
  - PARAPROTEINAEMIA [None]
